FAERS Safety Report 25059689 (Version 2)
Quarter: 2025Q1

REPORT INFORMATION
  Report Type: Other
  Country: CA (occurrence: CA)
  Receive Date: 20250310
  Receipt Date: 20250321
  Transmission Date: 20250408
  Serious: Yes (Death, Hospitalization)
  Sender: TOLMAR
  Company Number: CA-20250226-96d7e1

PATIENT
  Sex: Male

DRUGS (3)
  1. ELIGARD [Suspect]
     Active Substance: LEUPROLIDE ACETATE
     Indication: Prostate cancer
     Dosage: 22.5 MG, EVERY 3 MONTHS
     Route: 058
     Dates: start: 20220531
  2. ELIGARD [Suspect]
     Active Substance: LEUPROLIDE ACETATE
     Dosage: 22.5 MG, EVERY 3 MONTHS
     Route: 058
     Dates: start: 20241210
  3. UNSPECIFIED INGREDIENT [Concomitant]
     Active Substance: UNSPECIFIED INGREDIENT
     Indication: Product used for unknown indication

REACTIONS (4)
  - Death [Fatal]
  - Peripheral swelling [Unknown]
  - Hypoaesthesia [Unknown]
  - Pleural effusion [Unknown]
